FAERS Safety Report 6607443-6 (Version None)
Quarter: 2010Q1

REPORT INFORMATION
  Report Type: 
  Country: None (occurrence: None)
  Receive Date: 20100301
  Receipt Date: 20100215
  Transmission Date: 20100710
  Serious: Yes (Death)
  Sender: FDA-Public Use
  Company Number: US-JNJFOC-20100208253

PATIENT
  Age: 26 Year
  Sex: Male
  Weight: 81.19 kg

DRUGS (7)
  1. FENTANYL [Suspect]
     Indication: DRUG USE FOR UNKNOWN INDICATION
  2. DIPHENHYDRAMINE HCL [Suspect]
  3. DIPHENHYDRAMINE HCL [Suspect]
     Indication: DRUG USE FOR UNKNOWN INDICATION
  4. COCAINE [Suspect]
     Indication: DRUG USE FOR UNKNOWN INDICATION
  5. ETHYL ALCOHOL [Suspect]
     Indication: DRUG USE FOR UNKNOWN INDICATION
  6. CANNABIS [Concomitant]
     Indication: DRUG USE FOR UNKNOWN INDICATION
  7. LEVAMISOLE [Concomitant]
     Indication: DRUG USE FOR UNKNOWN INDICATION

REACTIONS (2)
  - DRUG ABUSE [None]
  - DRUG TOXICITY [None]
